FAERS Safety Report 25558391 (Version 2)
Quarter: 2025Q3

REPORT INFORMATION
  Report Type: Report from Study
  Country: US (occurrence: US)
  Receive Date: 20250715
  Receipt Date: 20250805
  Transmission Date: 20251020
  Serious: Yes (Hospitalization, Other)
  Sender: ABBVIE
  Company Number: US-ABBVIE-6369660

PATIENT
  Age: 83 Year
  Sex: Female

DRUGS (2)
  1. VENCLEXTA [Suspect]
     Active Substance: VENETOCLAX
     Indication: Chronic lymphocytic leukaemia
     Dosage: MISSED DOSE
     Route: 048
     Dates: start: 20250219
  2. VENCLEXTA [Suspect]
     Active Substance: VENETOCLAX
     Indication: Chronic lymphocytic leukaemia
     Route: 048
     Dates: start: 202507

REACTIONS (9)
  - Hip arthroplasty [Unknown]
  - Asthenia [Unknown]
  - Fatigue [Unknown]
  - Depression [Recovering/Resolving]
  - Gastrointestinal disorder [Unknown]
  - Pain [Unknown]
  - Nervousness [Unknown]
  - Dizziness [Unknown]
  - Blood pressure decreased [Unknown]

NARRATIVE: CASE EVENT DATE: 20250101
